FAERS Safety Report 19725801 (Version 1)
Quarter: 2021Q3

REPORT INFORMATION
  Report Type: Spontaneous
  Country: US (occurrence: US)
  Receive Date: 20210819
  Receipt Date: 20210819
  Transmission Date: 20211014
  Serious: No
  Sender: FDA-Public Use
  Company Number: US-MANNKIND CORPORATION-2020MK000070

PATIENT
  Sex: Female
  Weight: 47.67 kg

DRUGS (4)
  1. AFREZZA [Suspect]
     Active Substance: INSULIN HUMAN
     Dates: start: 202003
  2. AFREZZA [Suspect]
     Active Substance: INSULIN HUMAN
     Indication: TYPE 1 DIABETES MELLITUS
     Dates: start: 202003
  3. AFREZZA [Suspect]
     Active Substance: INSULIN HUMAN
     Dates: start: 202003
  4. LEVOXYL [Concomitant]
     Active Substance: LEVOTHYROXINE SODIUM
     Indication: THYROID DISORDER
     Route: 048
     Dates: start: 2018

REACTIONS (2)
  - Blood glucose fluctuation [Recovered/Resolved]
  - Oropharyngeal pain [Recovered/Resolved]
